FAERS Safety Report 6830725-X (Version None)
Quarter: 2010Q3

REPORT INFORMATION
  Report Type: 
  Country: None (occurrence: None)
  Receive Date: 20100709
  Receipt Date: 20100709
  Transmission Date: 20110219
  Serious: No
  Sender: FDA-Public Use
  Company Number: None

PATIENT
  Age: 27 Year
  Sex: Female
  Weight: 95.2554 kg

DRUGS (2)
  1. ALLI [Suspect]
     Indication: WEIGHT DECREASED
     Dosage: 1 PILL 3 TIMES A DAY PO
     Route: 048
     Dates: start: 20080801, end: 20081001
  2. ALLI [Suspect]
     Indication: WEIGHT DECREASED
     Dosage: 1 PILL 3 TIMES A DAY PO
     Route: 048
     Dates: start: 20100212, end: 20100610

REACTIONS (3)
  - ALANINE AMINOTRANSFERASE INCREASED [None]
  - ASPARTATE AMINOTRANSFERASE INCREASED [None]
  - INFLAMMATION [None]
